FAERS Safety Report 21613232 (Version 2)
Quarter: 2023Q1

REPORT INFORMATION
  Report Type: Report from Study
  Country: US (occurrence: US)
  Receive Date: 20221118
  Receipt Date: 20230218
  Transmission Date: 20230418
  Serious: Yes (Hospitalization)
  Sender: FDA-Public Use
  Company Number: US-TAKEDA-2022TUS074505

PATIENT
  Sex: Female
  Weight: 55 kg

DRUGS (14)
  1. TEDUGLUTIDE [Suspect]
     Active Substance: TEDUGLUTIDE
     Indication: Short-bowel syndrome
     Dosage: 3 MILLIGRAM, QD
     Route: 058
  2. TEDUGLUTIDE [Suspect]
     Active Substance: TEDUGLUTIDE
     Indication: Short-bowel syndrome
     Dosage: 3 MILLIGRAM, QD
     Route: 058
  3. TEDUGLUTIDE [Suspect]
     Active Substance: TEDUGLUTIDE
     Indication: Short-bowel syndrome
     Dosage: 3 MILLIGRAM, QD
     Route: 058
  4. TEDUGLUTIDE [Suspect]
     Active Substance: TEDUGLUTIDE
     Indication: Short-bowel syndrome
     Dosage: 3 MILLIGRAM, QD
     Route: 058
  5. DOXYCYCLINE HYCLATE [Concomitant]
     Active Substance: DOXYCYCLINE HYCLATE
     Indication: Product used for unknown indication
     Dosage: 100 MILLIGRAM
     Route: 065
  6. ALPRAZOLAM [Concomitant]
     Active Substance: ALPRAZOLAM
     Indication: Product used for unknown indication
     Dosage: 2 MILLIGRAM
     Route: 065
  7. EVEKEO [Concomitant]
     Active Substance: AMPHETAMINE SULFATE
     Indication: Product used for unknown indication
     Dosage: 10 MILLIGRAM
     Route: 065
  8. SENNA [Concomitant]
     Active Substance: SENNA LEAF\SENNOSIDES\SENNOSIDES A AND B
     Indication: Product used for unknown indication
     Dosage: 8.6 MILLIGRAM
     Route: 065
  9. OXYCODONE HYDROCHLORIDE [Concomitant]
     Active Substance: OXYCODONE HYDROCHLORIDE
     Indication: Product used for unknown indication
     Dosage: 5 MILLIGRAM
     Route: 065
  10. TIZANIDINE HYDROCHLORIDE [Concomitant]
     Active Substance: TIZANIDINE HYDROCHLORIDE
     Indication: Product used for unknown indication
     Dosage: 4 MILLIGRAM
     Route: 065
  11. ONDANSETRON [Concomitant]
     Active Substance: ONDANSETRON
     Indication: Product used for unknown indication
     Dosage: 8 MILLIGRAM
     Route: 065
  12. SYMPROIC [Concomitant]
     Active Substance: NALDEMEDINE
     Indication: Product used for unknown indication
     Dosage: 0.2 MILLIGRAM
     Route: 065
  13. APREPITANT [Concomitant]
     Active Substance: APREPITANT
     Indication: Product used for unknown indication
     Dosage: 80 MILLIGRAM
     Route: 065
  14. FENTANYL [Concomitant]
     Active Substance: FENTANYL
     Indication: Product used for unknown indication
     Dosage: 12 MICROGRAM, Q1HR
     Route: 065

REACTIONS (5)
  - Arthropod bite [Unknown]
  - Localised infection [Unknown]
  - Nausea [Unknown]
  - Weight increased [Unknown]
  - Constipation [Recovered/Resolved]
